FAERS Safety Report 9540806 (Version 1)
Quarter: 2013Q3

REPORT INFORMATION
  Report Type: Spontaneous
  Country: UG (occurrence: UG)
  Receive Date: 20130920
  Receipt Date: 20130920
  Transmission Date: 20140515
  Serious: Yes (Other)
  Sender: FDA-Public Use
  Company Number: PHHY2013UG103281

PATIENT
  Age: 23 Year
  Sex: Female

DRUGS (5)
  1. METOPROLOL [Suspect]
     Indication: LABILE BLOOD PRESSURE
     Route: 042
  2. HYDRALAZINE [Suspect]
     Indication: LABILE BLOOD PRESSURE
     Route: 042
  3. MAGNESIUM SULPHATE//MAGNESIUM SULFATE [Concomitant]
     Indication: PRE-ECLAMPSIA
  4. PRAZOSIN [Concomitant]
     Indication: LABILE BLOOD PRESSURE
     Route: 048
  5. NIFEDIPINE [Concomitant]
     Indication: LABILE BLOOD PRESSURE

REACTIONS (3)
  - Labile blood pressure [Recovering/Resolving]
  - Premature labour [Unknown]
  - Maternal exposure during pregnancy [Unknown]
